FAERS Safety Report 15905311 (Version 2)
Quarter: 2019Q1

REPORT INFORMATION
  Report Type: Report from Study
  Country: US (occurrence: US)
  Receive Date: 20190204
  Receipt Date: 20190326
  Transmission Date: 20190417
  Serious: Yes (Death, Other)
  Sender: FDA-Public Use
  Company Number: US-ROCHE-1529131

PATIENT
  Age: 41 Year
  Sex: Female

DRUGS (1)
  1. ALTEPLASE. [Suspect]
     Active Substance: ALTEPLASE
     Indication: CEREBROVASCULAR ACCIDENT
     Dosage: 9 DOSES; ?INTRAVENTRICULAR CATHETER;
     Route: 050

REACTIONS (6)
  - Cerebral ischaemia [Recovered/Resolved]
  - Cardiac arrest [Fatal]
  - Leukocytosis [Recovered/Resolved]
  - Hypernatraemia [Recovered/Resolved]
  - International normalised ratio increased [Recovered/Resolved]
  - Hyperglycaemia [Recovered/Resolved]

NARRATIVE: CASE EVENT DATE: 20141002
